FAERS Safety Report 9242277 (Version 1)
Quarter: 2013Q2

REPORT INFORMATION
  Report Type: Report from Study
  Country: JP (occurrence: JP)
  Receive Date: 20130419
  Receipt Date: 20130419
  Transmission Date: 20140414
  Serious: Yes (Life-Threatening, Hospitalization)
  Sender: FDA-Public Use
  Company Number: JP-SANOFI-AVENTIS-2013SA020103

PATIENT
  Age: 77 Year
  Sex: Male
  Weight: 54 kg

DRUGS (24)
  1. PLAVIX [Suspect]
     Indication: LACUNAR INFARCTION
     Route: 048
     Dates: start: 20120410
  2. OKIRICON [Concomitant]
     Route: 042
     Dates: start: 20120406, end: 20120410
  3. NORMAL SALINE [Concomitant]
     Route: 042
     Dates: start: 20120406, end: 20120410
  4. NORMAL SALINE [Concomitant]
     Dosage: 3 AMPULES, 2 ML/HR
     Route: 041
     Dates: start: 20120421, end: 20120426
  5. NORMAL SALINE [Concomitant]
     Route: 042
     Dates: start: 20120406, end: 20120506
  6. RADICUT [Concomitant]
     Route: 042
     Dates: start: 20120406, end: 20120410
  7. KN SOL. 3B [Concomitant]
     Indication: FLUID REPLACEMENT
     Route: 042
     Dates: start: 20120406, end: 20120412
  8. KN SOL. 3B [Concomitant]
     Indication: FLUID REPLACEMENT
     Route: 042
     Dates: start: 20120413, end: 20120413
  9. KN SOL. 3B [Concomitant]
     Indication: FLUID REPLACEMENT
     Route: 042
     Dates: start: 20120406, end: 20120411
  10. KN SOL. 3B [Concomitant]
     Indication: FLUID REPLACEMENT
     Route: 042
     Dates: start: 20120412, end: 20120413
  11. NOVOLIN R [Concomitant]
     Indication: FLUID REPLACEMENT
     Dosage: DOSE:4 UNIT(S)
     Route: 042
     Dates: start: 20120413, end: 20120413
  12. NOVOLIN R [Concomitant]
     Indication: FLUID REPLACEMENT
     Dosage: DOSE:4 UNIT(S)
     Route: 042
     Dates: start: 20120412, end: 20120413
  13. NOVOLIN R [Concomitant]
     Indication: FLUID REPLACEMENT
     Dosage: DOSE:8 UNIT(S)
     Route: 042
     Dates: start: 20120414, end: 20120420
  14. NOVOLIN R [Concomitant]
     Indication: FLUID REPLACEMENT
     Dosage: DOSE:6 UNIT(S)
     Route: 042
     Dates: start: 20120414, end: 20120418
  15. NOVOLIN R [Concomitant]
     Indication: FLUID REPLACEMENT
     Dosage: DOSE:6 UNIT(S)
     Route: 042
     Dates: start: 20120419, end: 20120420
  16. C-PARA [Concomitant]
     Indication: FLUID REPLACEMENT
     Dosage: DOSE: 1 AMPULE
     Dates: start: 20120406, end: 20120411
  17. C-PARA [Concomitant]
     Indication: FLUID REPLACEMENT
     Dosage: DOSE: 1 AMPULE
     Dates: start: 20120412, end: 20120413
  18. C-PARA [Concomitant]
     Indication: FLUID REPLACEMENT
     Dosage: DOSE: 1 AMPULE
     Dates: start: 20120414, end: 20120420
  19. GLUCOSE [Concomitant]
     Indication: FLUID REPLACEMENT
     Route: 042
     Dates: start: 20120414, end: 20120420
  20. AMINO ACIDS NOS/ELECTROLYTES NOS/MALIC ACID [Concomitant]
     Indication: FLUID REPLACEMENT
     Route: 042
     Dates: start: 20120414, end: 20120418
  21. AMINO ACIDS NOS/ELECTROLYTES NOS/MALIC ACID [Concomitant]
     Indication: FLUID REPLACEMENT
     Route: 042
     Dates: start: 20120419, end: 20120420
  22. LANTUS SOLOSTAR [Concomitant]
     Dosage: DOSE:6 UNIT(S)
     Route: 058
     Dates: start: 20120419, end: 20120419
  23. LANTUS SOLOSTAR [Concomitant]
     Dosage: DOSE:10 UNIT(S)
     Route: 058
     Dates: start: 20120420, end: 20120420
  24. LANTUS SOLOSTAR [Concomitant]
     Dosage: DOSE:14 UNIT(S)
     Route: 058
     Dates: start: 20120421, end: 20120421

REACTIONS (4)
  - Septic shock [Recovered/Resolved]
  - Infection [Recovering/Resolving]
  - Pseudomembranous colitis [Recovered/Resolved]
  - Urinary tract infection [Recovered/Resolved]
